FAERS Safety Report 9476785 (Version 8)
Quarter: 2014Q2

REPORT INFORMATION
  Report Type: Report from Study
  Country: GR (occurrence: GR)
  Receive Date: 20130826
  Receipt Date: 20140623
  Transmission Date: 20141212
  Serious: Yes (Death, Life-Threatening, Hospitalization, Disabling)
  Sender: FDA-Public Use
  Company Number: PHHY2013GR091225

PATIENT
  Age: 59 Year
  Sex: Female
  Weight: 88 kg

DRUGS (3)
  1. FTY 720 [Suspect]
     Indication: MULTIPLE SCLEROSIS
     Dosage: 0.5 MG, QD
     Route: 048
     Dates: start: 20130715, end: 20130804
  2. CYMBALTA [Concomitant]
     Indication: DEPRESSION
     Dosage: 60 MG, QD
     Dates: start: 20130520, end: 20130804
  3. LEPUR [Concomitant]
     Indication: DYSLIPIDAEMIA
     Dosage: 20 MG, QD
     Dates: start: 20120201, end: 20130803

REACTIONS (13)
  - Drowning [Fatal]
  - Multi-organ failure [Fatal]
  - Peritonitis [Fatal]
  - Septic shock [Fatal]
  - Electroencephalogram abnormal [Not Recovered/Not Resolved]
  - Haemodynamic instability [Not Recovered/Not Resolved]
  - Areflexia [Not Recovered/Not Resolved]
  - Near drowning [Not Recovered/Not Resolved]
  - Pulse absent [Not Recovered/Not Resolved]
  - Cardiac disorder [Not Recovered/Not Resolved]
  - Brain oedema [Recovering/Resolving]
  - Loss of consciousness [Not Recovered/Not Resolved]
  - Heart rate irregular [Fatal]
